FAERS Safety Report 10392299 (Version 1)
Quarter: 2014Q3

REPORT INFORMATION
  Report Type: Report from Study
  Country: BR (occurrence: BR)
  Receive Date: 20140819
  Receipt Date: 20140819
  Transmission Date: 20150326
  Serious: Yes (Hospitalization)
  Sender: FDA-Public Use
  Company Number: BR-ROCHE-1450473

PATIENT
  Age: 16 Year
  Sex: Female
  Weight: 55 kg

DRUGS (14)
  1. NPH INSULIN [Concomitant]
     Active Substance: INSULIN BEEF
     Dosage: 14 U IN THE MORNING AND 22 U AT NIGHT
     Route: 065
  2. COLIMICIN [Concomitant]
     Active Substance: COLISTIN SULFATE
     Dosage: (INHALED ANTIBIOTIC) 250 MG PLUS 2 ML OF SALINE SOLUTION
     Route: 065
  3. PANCREATIC ENZYMES [Concomitant]
     Active Substance: UNSPECIFIED INGREDIENT
     Dosage: 10000 U 60 CAPSULES/DAY
     Route: 065
  4. LISPRO INSULIN [Concomitant]
     Active Substance: INSULIN LISPRO
     Dosage: 6 U IN THE MORNING, 8 U IN THE AFTERNOON AND 8 U AT DINNER
     Route: 065
  5. CIPROFLOXACIN. [Concomitant]
     Active Substance: CIPROFLOXACIN
     Route: 065
  6. BUDESONIDE. [Concomitant]
     Active Substance: BUDESONIDE
     Dosage: (NASAL) 2 PUFFS/DAY
     Route: 065
  7. FLUIR [Concomitant]
     Active Substance: FORMOTEROL FUMARATE
     Route: 065
  8. OMEPRAZOLE. [Concomitant]
     Active Substance: OMEPRAZOLE
     Indication: GASTRIC DISORDER
     Route: 065
  9. CLARITHROMYCIN. [Concomitant]
     Active Substance: CLARITHROMYCIN
     Route: 065
  10. BEROTEC [Concomitant]
     Active Substance: FENOTEROL HYDROBROMIDE
     Dosage: 9G TWICE A DAY
     Route: 065
  11. AMIKACIN [Concomitant]
     Active Substance: AMIKACIN
     Dosage: INHALED ANTIBIOTIC
     Route: 065
  12. PULMOZYME [Suspect]
     Active Substance: DORNASE ALFA
     Indication: CYSTIC FIBROSIS
     Route: 065
  13. URSACOL [Concomitant]
     Active Substance: URSODIOL
     Indication: LIVER DISORDER
     Route: 065
  14. BUDESONIDE. [Concomitant]
     Active Substance: BUDESONIDE
     Dosage: ORAL INHALATION
     Route: 065

REACTIONS (5)
  - Diabetes mellitus [Not Recovered/Not Resolved]
  - Drug dose omission [Unknown]
  - Disease progression [Recovered/Resolved]
  - Immune system disorder [Not Recovered/Not Resolved]
  - Pyrexia [Not Recovered/Not Resolved]

NARRATIVE: CASE EVENT DATE: 20140813
